FAERS Safety Report 8769838 (Version 3)
Quarter: 2012Q4

REPORT INFORMATION
  Report Type: 
  Country: AU (occurrence: AU)
  Receive Date: 20120905
  Receipt Date: 20121217
  Transmission Date: 20130627
  Serious: Yes (Death)
  Sender: FDA-Public Use
  Company Number: AU-009507513-1208AUS012383

PATIENT
  Age: 57 Year
  Sex: Male

DRUGS (4)
  1. REMERON [Suspect]
     Dosage: UNK
     Route: 048
  2. FLUOXETINE [Suspect]
  3. TEMAZEPAM [Suspect]
  4. ALCOHOL [Suspect]

REACTIONS (1)
  - Intentional overdose [Fatal]
